FAERS Safety Report 26196240 (Version 1)
Quarter: 2025Q4

REPORT INFORMATION
  Report Type: Spontaneous
  Country: CN (occurrence: CN)
  Receive Date: 20251224
  Receipt Date: 20251224
  Transmission Date: 20260118
  Serious: Yes (Hospitalization)
  Sender: ABBVIE
  Company Number: CN-ABBVIE-6599786

PATIENT
  Age: 71 Year
  Sex: Male
  Weight: 63 kg

DRUGS (2)
  1. VENETOCLAX [Suspect]
     Active Substance: VENETOCLAX
     Indication: Acute myeloid leukaemia
     Dosage: 400 MILLIGRAM
     Route: 048
     Dates: start: 20251118, end: 20251204
  2. AZACITIDINE [Suspect]
     Active Substance: AZACITIDINE
     Indication: Acute myeloid leukaemia
     Dosage: 125 MILLIGRAM
     Route: 058
     Dates: start: 20251117, end: 20251121

REACTIONS (2)
  - Myelosuppression [Recovering/Resolving]
  - Tongue ulceration [Unknown]

NARRATIVE: CASE EVENT DATE: 20251204
